FAERS Safety Report 12884176 (Version 1)
Quarter: 2016Q4

REPORT INFORMATION
  Report Type: Spontaneous
  Country: US (occurrence: US)
  Receive Date: 20161024
  Receipt Date: 20161024
  Transmission Date: 20170207
  Serious: No
  Sender: FDA-Public Use
  Company Number: None

PATIENT
  Age: 47 Year
  Sex: Male

DRUGS (1)
  1. HUMIRA [Suspect]
     Active Substance: ADALIMUMAB
     Indication: PSORIASIS
     Dosage: 40MG EVERY 2 WEEKS
     Route: 058
     Dates: start: 20151117, end: 20160831

REACTIONS (1)
  - Chronic myeloid leukaemia [None]

NARRATIVE: CASE EVENT DATE: 20161021
